FAERS Safety Report 6638723-6 (Version None)
Quarter: 2010Q1

REPORT INFORMATION
  Report Type: 
  Country: None (occurrence: None)
  Receive Date: 20100316
  Receipt Date: 20100316
  Transmission Date: 20100710
  Serious: Yes (Other)
  Sender: FDA-Public Use
  Company Number: None

PATIENT
  Age: 56 Year
  Sex: Male
  Weight: 99.7913 kg

DRUGS (1)
  1. HUMALOG MIX 50/50 KWIKPEN [Suspect]
     Indication: DIABETES MELLITUS
     Dosage: 25 UNITS 2X PER DAY SQ
     Route: 058
     Dates: start: 20100311, end: 20100311

REACTIONS (3)
  - HYPERHIDROSIS [None]
  - PRODUCT QUALITY ISSUE [None]
  - RASH GENERALISED [None]
